FAERS Safety Report 21022665 (Version 1)
Quarter: 2022Q2

REPORT INFORMATION
  Report Type: Spontaneous
  Country: None (occurrence: US)
  Receive Date: 20220629
  Receipt Date: 20220629
  Transmission Date: 20220721
  Serious: Yes (Other)
  Sender: FDA-Public Use
  Company Number: US-Pharmascience Inc.-2130395

PATIENT
  Age: 36 Year
  Sex: Male

DRUGS (3)
  1. DECITABINE [Suspect]
     Active Substance: DECITABINE
     Indication: Chronic myelomonocytic leukaemia
     Route: 065
  2. DESMOPRESSIN ACETATE [Concomitant]
     Active Substance: DESMOPRESSIN ACETATE
  3. Isotonic fluids [Concomitant]

REACTIONS (2)
  - Chronic myelomonocytic leukaemia [Unknown]
  - Acute myeloid leukaemia [Not Recovered/Not Resolved]
